FAERS Safety Report 21298913 (Version 1)
Quarter: 2022Q3

REPORT INFORMATION
  Report Type: Spontaneous
  Country: US (occurrence: None)
  Receive Date: 20220905
  Receipt Date: 20220905
  Transmission Date: 20221027
  Serious: Yes (Disabling)
  Sender: FDA-Public Use
  Company Number: None

PATIENT
  Age: 40 Year
  Sex: Male
  Weight: 78.75 kg

DRUGS (5)
  1. MINOXIDIL [Suspect]
     Active Substance: MINOXIDIL
     Indication: Alopecia
     Dosage: OTHER QUANTITY : 0.5 TABLET(S);?
     Route: 048
     Dates: start: 20220831, end: 20220904
  2. Nutrafol for men [Concomitant]
  3. IRON [Concomitant]
     Active Substance: IRON
  4. JWH-018 [Concomitant]
     Active Substance: JWH-018
  5. VITAMIN D3 [Concomitant]
     Active Substance: CHOLECALCIFEROL

REACTIONS (3)
  - Libido decreased [None]
  - Erectile dysfunction [None]
  - Insomnia [None]

NARRATIVE: CASE EVENT DATE: 20220904
